FAERS Safety Report 24853937 (Version 1)
Quarter: 2025Q1

REPORT INFORMATION
  Report Type: Spontaneous
  Country: US (occurrence: US)
  Receive Date: 20250117
  Receipt Date: 20250117
  Transmission Date: 20250408
  Serious: Yes (Hospitalization, Other)
  Sender: NOVO NORDISK
  Company Number: US-NOVOPROD-1350734

PATIENT
  Age: 68 Year
  Sex: Male

DRUGS (1)
  1. WEGOVY [Suspect]
     Active Substance: SEMAGLUTIDE
     Indication: Weight control
     Dosage: 2.4 MG, QW
     Route: 058
     Dates: start: 20240529

REACTIONS (3)
  - Biopsy muscle [Recovered/Resolved]
  - Abscess jaw [Recovered/Resolved]
  - Colonoscopy [Recovered/Resolved]

NARRATIVE: CASE EVENT DATE: 20240620
